FAERS Safety Report 26209410 (Version 1)
Quarter: 2025Q4

REPORT INFORMATION
  Report Type: Spontaneous
  Country: US (occurrence: US)
  Receive Date: 20251229
  Receipt Date: 20251229
  Transmission Date: 20260118
  Serious: No
  Sender: FRESENIUS KABI
  Company Number: US-FreseniusKabi-FK202517123

PATIENT

DRUGS (1)
  1. POLOCAINE-MPF [Suspect]
     Active Substance: MEPIVACAINE HYDROCHLORIDE
     Indication: Spinal anaesthesia
     Dosage: INJECTION
     Dates: start: 20251211

REACTIONS (2)
  - Off label use [Unknown]
  - Drug ineffective for unapproved indication [Unknown]

NARRATIVE: CASE EVENT DATE: 20251211
